FAERS Safety Report 26058701 (Version 1)
Quarter: 2025Q4

REPORT INFORMATION
  Report Type: Spontaneous
  Country: US (occurrence: None)
  Receive Date: 20251117
  Receipt Date: 20251117
  Transmission Date: 20260117
  Serious: Yes (Disabling, Other)
  Sender: FDA-CTU
  Company Number: None

PATIENT
  Age: 39 Year
  Sex: Male
  Weight: 69.75 kg

DRUGS (1)
  1. HADLIMA [Suspect]
     Active Substance: ADALIMUMAB-BWWD
     Indication: Prostatic specific antigen
     Dosage: OTHER QUANTITY : 1 INJECTION(S)?OTHER FREQUENCY : EVERY 14 DAYS?OTHER ROUTE : SUBCUTANOUS?
     Route: 050
     Dates: start: 20250822, end: 20250822

REACTIONS (13)
  - Injection site pain [None]
  - Influenza like illness [None]
  - Neuralgia [None]
  - Gait disturbance [None]
  - Muscular weakness [None]
  - Paraesthesia [None]
  - Hypoaesthesia [None]
  - Paraesthesia [None]
  - Paraesthesia [None]
  - Hypoaesthesia [None]
  - Trigeminal neuralgia [None]
  - General physical health deterioration [None]
  - Loss of personal independence in daily activities [None]

NARRATIVE: CASE EVENT DATE: 20250822
